FAERS Safety Report 22998347 (Version 3)
Quarter: 2025Q2

REPORT INFORMATION
  Report Type: Spontaneous
  Country: US (occurrence: US)
  Receive Date: 20230928
  Receipt Date: 20250410
  Transmission Date: 20250716
  Serious: Yes (Other)
  Sender: ELI LILLY AND CO
  Company Number: US-ELI_LILLY_AND_COMPANY-US202309015189

PATIENT
  Age: 66 Year
  Sex: Female

DRUGS (3)
  1. VERZENIO [Suspect]
     Active Substance: ABEMACICLIB
     Indication: Breast cancer female
     Route: 065
     Dates: start: 20230912
  2. VERZENIO [Suspect]
     Active Substance: ABEMACICLIB
     Route: 065
  3. VERZENIO [Suspect]
     Active Substance: ABEMACICLIB
     Route: 065

REACTIONS (9)
  - White blood cell count decreased [Unknown]
  - Urine calcium increased [Unknown]
  - Nephrolithiasis [Unknown]
  - Dysuria [Unknown]
  - Rash [Unknown]
  - Constipation [Unknown]
  - Stomatitis [Unknown]
  - Diarrhoea [Unknown]
  - Neutropenia [Unknown]
